FAERS Safety Report 8897778 (Version 1)
Quarter: 2012Q4

REPORT INFORMATION
  Report Type: 
  Country: US (occurrence: US)
  Receive Date: 20121108
  Receipt Date: 20121108
  Transmission Date: 20130627
  Serious: No
  Sender: FDA-Public Use
  Company Number: US-AMGEN-USASP2012024882

PATIENT
  Age: 53 Year
  Sex: Female

DRUGS (10)
  1. ENBREL [Suspect]
     Indication: PRODUCT USED FOR UNKNOWN INDICATION
     Dosage: 50 mg, qwk
     Route: 058
  2. METHOTREXATE [Concomitant]
     Dosage: 25 mg, UNK
  3. LOVASTATIN [Concomitant]
     Dosage: 40 mg, UNK
  4. ASPIRIN [Concomitant]
     Dosage: 81 mg, UNK
  5. VITAMIN D /00107901/ [Concomitant]
     Dosage: UNK
  6. VITAMIN E AL [Concomitant]
     Dosage: UNK
  7. VITAMIN C + E [Concomitant]
     Dosage: UNK
  8. OMEGA 3                            /01334101/ [Concomitant]
     Dosage: 100 mug, UNK
  9. FOLIC ACID [Concomitant]
     Dosage: 20 mg, UNK
  10. SUMATRIPTAN [Concomitant]
     Dosage: 6 mg, UNK

REACTIONS (4)
  - Injection site pruritus [Unknown]
  - Injection site swelling [Unknown]
  - Injection site warmth [Unknown]
  - Injection site erythema [Unknown]
